FAERS Safety Report 23338103 (Version 1)
Quarter: 2023Q4

REPORT INFORMATION
  Report Type: Spontaneous
  Country: US (occurrence: US)
  Receive Date: 20231226
  Receipt Date: 20231226
  Transmission Date: 20240110
  Serious: Yes (Other)
  Sender: FDA-Public Use
  Company Number: US-BAYER-2023A180384

PATIENT
  Sex: Female

DRUGS (4)
  1. BETASERON [Suspect]
     Active Substance: INTERFERON BETA-1B
     Indication: Multiple sclerosis
  2. GABAPENTIN [Concomitant]
     Active Substance: GABAPENTIN
  3. BACLOFEN [Concomitant]
     Active Substance: BACLOFEN
  4. OCREVUS [Concomitant]
     Active Substance: OCRELIZUMAB

REACTIONS (3)
  - Primary progressive multiple sclerosis [Unknown]
  - Illness [Unknown]
  - Drug ineffective [Unknown]
